FAERS Safety Report 9814592 (Version 3)
Quarter: 2014Q1

REPORT INFORMATION
  Report Type: Report from Study
  Country: DE (occurrence: DE)
  Receive Date: 20140113
  Receipt Date: 20140205
  Transmission Date: 20141002
  Serious: Yes (Death, Hospitalization)
  Sender: FDA-Public Use
  Company Number: PHHO2013DE011453

PATIENT
  Sex: 0

DRUGS (20)
  1. EVEROLIMUS [Suspect]
     Indication: RENAL TRANSPLANT
     Dosage: 1.5 MG, BID
     Route: 048
     Dates: start: 20130411, end: 20130828
  2. EVEROLIMUS [Suspect]
     Dosage: 1.5 MG, BID
     Route: 048
     Dates: end: 20131021
  3. TACROLIMUS [Suspect]
     Indication: RENAL TRANSPLANT
     Dosage: 1.5 MG, QD
     Dates: start: 20130411, end: 20130828
  4. TACROLIMUS [Suspect]
     Dosage: 1.5 MG, QD
     Dates: end: 20131022
  5. TACROLIMUS [Suspect]
     Dosage: UNK
     Dates: start: 20131125
  6. DECORTIN [Suspect]
     Indication: RENAL TRANSPLANT
     Dosage: 5 MG, QD
     Dates: start: 20130411, end: 20131022
  7. DECORTIN [Suspect]
     Dosage: UNK
  8. PREDNISOLON [Concomitant]
     Dosage: 5 MG, QD
  9. BICANORM [Concomitant]
     Indication: METABOLIC ACIDOSIS
     Dosage: 2 G, TID
     Dates: start: 20130501
  10. PANTOZOL [Concomitant]
     Indication: PROPHYLAXIS
     Dosage: 40 MG, QD
     Dates: start: 20130520
  11. ARANESP [Concomitant]
     Indication: HYPOCHROMIC ANAEMIA
     Dosage: 40 UG, QW
     Dates: start: 20130725
  12. METOHEXAL [Concomitant]
     Indication: HYPERTENSION
     Dosage: 25 MG, QD
     Dates: start: 20130527, end: 20130828
  13. DELIX [Concomitant]
     Indication: HYPERTENSION
     Dosage: 2.5 MG, QD
     Dates: start: 20130417, end: 20130828
  14. TOREM [Concomitant]
     Dosage: 5 MG, BID
     Dates: end: 20131206
  15. ROCALTROL [Concomitant]
     Dosage: 0.25 UG, QD
     Dates: end: 20131206
  16. FOLSAN [Concomitant]
     Dosage: 5 MG, 3/SAY
     Dates: end: 20131206
  17. FOLSAN [Concomitant]
  18. KEPINOL [Concomitant]
     Indication: PROPHYLAXIS
     Dosage: 1 PER DAY
     Dates: start: 20130412, end: 20130828
  19. FERRO SANOL [Concomitant]
     Dosage: 100 MG, BID
     Dates: end: 20131022
  20. LEFAX [Concomitant]
     Dosage: 84 MG, TID
     Dates: end: 20131022

REACTIONS (5)
  - Gastroenteritis [Not Recovered/Not Resolved]
  - Subcutaneous abscess [Recovered/Resolved]
  - Epstein-Barr virus infection [Recovered/Resolved]
  - Kaposi^s sarcoma [Not Recovered/Not Resolved]
  - Death [Fatal]
